FAERS Safety Report 5476570-1 (Version None)
Quarter: 2007Q4

REPORT INFORMATION
  Report Type: 
  Country: None (occurrence: None)
  Receive Date: 20071004
  Receipt Date: 20070928
  Transmission Date: 20080405
  Serious: Yes (Other)
  Sender: FDA-Public Use
  Company Number: PHEH2007US13031

PATIENT

DRUGS (1)
  1. ENABLEX [Suspect]
     Indication: MICTURITION URGENCY
     Route: 048
     Dates: start: 20070801

REACTIONS (2)
  - DRUG INEFFECTIVE [None]
  - SURGERY [None]
